FAERS Safety Report 12932675 (Version 1)
Quarter: 2016Q4

REPORT INFORMATION
  Report Type: Spontaneous
  Country: GB (occurrence: GB)
  Receive Date: 20161111
  Receipt Date: 20161111
  Transmission Date: 20170207
  Serious: Yes (Death, Hospitalization, Other)
  Sender: FDA-Public Use
  Company Number: GB-DRREDDYS-USA/UKI/16/0084599

PATIENT
  Age: 43 Year
  Sex: Male

DRUGS (2)
  1. METRONIDAZOLE. [Suspect]
     Active Substance: METRONIDAZOLE
     Indication: GASTROENTERITIS
     Route: 048
  2. CIPROFLOXACIN. [Suspect]
     Active Substance: CIPROFLOXACIN
     Indication: GASTROENTERITIS
     Route: 048

REACTIONS (27)
  - Thrombocytopenia [Unknown]
  - Clostridium difficile colitis [Unknown]
  - Metal poisoning [Unknown]
  - Pleural effusion [Unknown]
  - Ascites [Unknown]
  - Cytopenia [Unknown]
  - Mucosal inflammation [Unknown]
  - Electrocardiogram T wave inversion [Unknown]
  - Renal impairment [Unknown]
  - Pericarditis [Unknown]
  - Leukocytosis [Unknown]
  - Cardio-respiratory arrest [Fatal]
  - Pulseless electrical activity [Fatal]
  - Alopecia [Unknown]
  - Red blood cell sedimentation rate increased [Unknown]
  - Haematemesis [Unknown]
  - Jaundice [Unknown]
  - Abdominal distension [Unknown]
  - Rash macular [Unknown]
  - Haemoglobin increased [Unknown]
  - Neutrophilia [Unknown]
  - Neutropenia [Unknown]
  - Pyrexia [Unknown]
  - C-reactive protein increased [Unknown]
  - Bone marrow failure [Unknown]
  - Metabolic acidosis [Unknown]
  - Cardiogenic shock [Unknown]
